FAERS Safety Report 7076254-2 (Version None)
Quarter: 2010Q4

REPORT INFORMATION
  Report Type: 
  Country: None (occurrence: None)
  Receive Date: 20101021
  Receipt Date: 20101013
  Transmission Date: 20110411
  Serious: Yes (Congenital Anomaly)
  Sender: FDA-Public Use
  Company Number: 725576

PATIENT

DRUGS (2)
  1. METHOTREXATE [Suspect]
     Dosage: TRANSPLACENTAL
     Route: 064
  2. FOLIC ACID [Concomitant]

REACTIONS (4)
  - ABORTION INDUCED [None]
  - DRUG EXPOSURE DURING PREGNANCY [None]
  - PREGNANCY [None]
  - SPINA BIFIDA [None]
